FAERS Safety Report 7591077-3 (Version None)
Quarter: 2011Q3

REPORT INFORMATION
  Report Type: 
  Country: None (occurrence: None)
  Receive Date: 20110705
  Receipt Date: 20110624
  Transmission Date: 20111222
  Serious: Yes (Other)
  Sender: FDA-Public Use
  Company Number: US-RB-025396-11

PATIENT
  Age: 56 Year
  Sex: Male

DRUGS (1)
  1. SUBOXONE [Suspect]
     Indication: PRODUCT USED FOR UNKNOWN INDICATION
     Dosage: SUBLINGUAL FILM / UNKNOWN DOSING INFORMATION
     Route: 065

REACTIONS (9)
  - WEIGHT DECREASED [None]
  - INSOMNIA [None]
  - NERVOUSNESS [None]
  - LOSS OF CONSCIOUSNESS [None]
  - ASTHENIA [None]
  - PAIN [None]
  - OFF LABEL USE [None]
  - DIZZINESS [None]
  - CHEST PAIN [None]
